FAERS Safety Report 5646737-8 (Version None)
Quarter: 2008Q1

REPORT INFORMATION
  Report Type: 
  Country: None (occurrence: None)
  Receive Date: 20080303
  Receipt Date: 20080222
  Transmission Date: 20080703
  Serious: Yes (Other)
  Sender: FDA-Public Use
  Company Number: IT-PURDUE-USA_2008_0031721

PATIENT
  Age: 27 Year
  Sex: Female

DRUGS (3)
  1. MORPHINE SULFATE [Suspect]
     Indication: NEURALGIA
     Dosage: 100 MG, DAILY
     Route: 040
  2. GABAPENTIN [Concomitant]
     Dosage: 1800 MG, DAILY
  3. AMITRIPTYLINE HCL [Concomitant]
     Dosage: 20 MG, DAILY

REACTIONS (3)
  - DRUG TOLERANCE [None]
  - HYPERAESTHESIA [None]
  - SOMNOLENCE [None]
